FAERS Safety Report 21487613 (Version 2)
Quarter: 2023Q2

REPORT INFORMATION
  Report Type: Report from Study
  Country: US (occurrence: US)
  Receive Date: 20221020
  Receipt Date: 20230405
  Transmission Date: 20230722
  Serious: No
  Sender: FDA-Public Use
  Company Number: US-ABBVIE-4162466

PATIENT
  Sex: Male

DRUGS (4)
  1. IMBRUVICA [Suspect]
     Active Substance: IBRUTINIB
     Indication: Chronic lymphocytic leukaemia
     Route: 048
     Dates: start: 20201201
  2. MODERNA COVID-19 VACCINE [Concomitant]
     Active Substance: ELASOMERAN
     Indication: COVID-19 immunisation
     Dosage: FIRST DOSE, ONCE
     Route: 030
     Dates: start: 20210101, end: 20210101
  3. MODERNA COVID-19 VACCINE [Concomitant]
     Active Substance: ELASOMERAN
     Indication: COVID-19 immunisation
     Dosage: SECOND DOSE, ONCE
     Route: 030
     Dates: start: 20210201, end: 20210201
  4. MODERNA COVID-19 VACCINE [Concomitant]
     Active Substance: ELASOMERAN
     Indication: COVID-19 immunisation
     Dosage: THIRD, BOOSTER DOSE, ONCE
     Route: 030
     Dates: start: 20220101, end: 20220101

REACTIONS (8)
  - SARS-CoV-2 antibody test negative [Recovered/Resolved]
  - Rash [Recovered/Resolved]
  - COVID-19 [Recovering/Resolving]
  - Contusion [Recovered/Resolved]
  - Weight decreased [Unknown]
  - Night sweats [Unknown]
  - Cough [Unknown]
  - Pyrexia [Unknown]

NARRATIVE: CASE EVENT DATE: 20230101
